FAERS Safety Report 5093983-0 (Version None)
Quarter: 2006Q3

REPORT INFORMATION
  Report Type: 
  Country: None (occurrence: None)
  Receive Date: 20060831
  Receipt Date: 20060630
  Transmission Date: 20061208
  Serious: Yes (Hospitalization, Other)
  Sender: FDA-Public Use
  Company Number: US-AVENTIS-200616944GDDC

PATIENT
  Age: 67 Year
  Sex: Female
  Weight: 66.7 kg

DRUGS (11)
  1. TAXOTERE [Suspect]
     Indication: NON-SMALL CELL LUNG CANCER
     Route: 042
     Dates: start: 20060622, end: 20060622
  2. CARBOPLATIN [Suspect]
     Indication: NON-SMALL CELL LUNG CANCER
     Route: 042
     Dates: start: 20060622, end: 20060622
  3. RADIATION THERAPY [Suspect]
     Indication: NON-SMALL CELL LUNG CANCER
     Dosage: DOSE: UNK
     Dates: start: 20060601, end: 20060628
  4. COMPAZINE [Concomitant]
     Route: 054
  5. ATIVAN [Concomitant]
  6. DIPHENHYDRAMINE [Concomitant]
     Dosage: DOSE: UNK
  7. ANTACID TAB [Concomitant]
     Dosage: DOSE: UNK
  8. LIDOCAINE [Concomitant]
     Dosage: DOSE: UNK
  9. ROXICODONE [Concomitant]
  10. DEXAMETHASONE [Concomitant]
  11. BENADRYL [Concomitant]

REACTIONS (11)
  - ATRIAL FIBRILLATION [None]
  - DYSPHAGIA [None]
  - MUCOSAL INFLAMMATION [None]
  - NAUSEA [None]
  - ODYNOPHAGIA [None]
  - OESOPHAGEAL CANDIDIASIS [None]
  - OESOPHAGEAL OBSTRUCTION [None]
  - PULMONARY EMBOLISM [None]
  - STAPHYLOCOCCAL SEPSIS [None]
  - STOMATITIS [None]
  - VOMITING [None]
